FAERS Safety Report 18386862 (Version 1)
Quarter: 2020Q4

REPORT INFORMATION
  Report Type: Spontaneous
  Country: CZ (occurrence: CZ)
  Receive Date: 20201015
  Receipt Date: 20201015
  Transmission Date: 20210114
  Serious: Yes (Other)
  Sender: FDA-Public Use
  Company Number: CZ-MYLANLABS-2020M1086005

PATIENT
  Age: 35 Year

DRUGS (1)
  1. IBUPROFEN. [Suspect]
     Active Substance: IBUPROFEN
     Indication: HANGOVER
     Dosage: UNK

REACTIONS (3)
  - Product use in unapproved indication [Unknown]
  - Gastric ulcer [Unknown]
  - Medication error [Unknown]
